FAERS Safety Report 23093836 (Version 2)
Quarter: 2023Q4

REPORT INFORMATION
  Report Type: Report from Study
  Country: US (occurrence: None)
  Receive Date: 20231023
  Receipt Date: 20231206
  Transmission Date: 20240109
  Serious: Yes (Other)
  Sender: FDA-Public Use
  Company Number: 2023A235436

PATIENT
  Sex: Female

DRUGS (2)
  1. CALQUENCE [Suspect]
     Active Substance: ACALABRUTINIB
     Route: 048
  2. LOSARTAN [Concomitant]
     Active Substance: LOSARTAN

REACTIONS (4)
  - Dehydration [Unknown]
  - Hypotension [Unknown]
  - Lethargy [Unknown]
  - Decreased appetite [Unknown]
